FAERS Safety Report 20037706 (Version 1)
Quarter: 2021Q4

REPORT INFORMATION
  Report Type: Spontaneous
  Country: DE (occurrence: None)
  Receive Date: 20211105
  Receipt Date: 20211105
  Transmission Date: 20220303
  Serious: Yes (Hospitalization)
  Sender: FDA-Public Use
  Company Number: DE-FRESENIUS KABI-FK202111993

PATIENT
  Age: 73 Year
  Sex: Male

DRUGS (1)
  1. SODIUM CHLORIDE [Suspect]
     Active Substance: SODIUM CHLORIDE
     Indication: Therapeutic procedure
     Dosage: UNK
     Route: 065

REACTIONS (2)
  - Acidosis hyperchloraemic [Recovered/Resolved]
  - Hypervolaemia [Recovered/Resolved]
